FAERS Safety Report 6192901-1 (Version None)
Quarter: 2009Q2

REPORT INFORMATION
  Report Type: 
  Country: None (occurrence: None)
  Receive Date: 20090514
  Receipt Date: 20090504
  Transmission Date: 20091009
  Serious: Yes (Death)
  Sender: FDA-Public Use
  Company Number: TRP_06135_2009

PATIENT
  Sex: Female
  Weight: 88.905 kg

DRUGS (6)
  1. RIBASPHERE [Suspect]
     Indication: HEPATITIS C
     Dosage: 1000 MG, 600 MG QAM AND 400 MG QPM ORAL
     Route: 048
     Dates: start: 20090212, end: 20090219
  2. PEGASYS [Suspect]
     Indication: HEPATITIS C
     Dosage: 180 MCG/0.5 ML SUBCUTANEOUS
     Route: 058
     Dates: start: 20090212, end: 20090212
  3. TRAMADOL HCL [Concomitant]
  4. EFFEXOR XR [Concomitant]
  5. VALTREX [Concomitant]
  6. FUROSEMIDE [Concomitant]

REACTIONS (7)
  - ASTHENIA [None]
  - DIZZINESS [None]
  - EATING DISORDER [None]
  - FLUID INTAKE REDUCED [None]
  - NAUSEA [None]
  - VISUAL IMPAIRMENT [None]
  - VOMITING [None]
